FAERS Safety Report 4707622-9 (Version None)
Quarter: 2005Q3

REPORT INFORMATION
  Report Type: 
  Country: None (occurrence: None)
  Receive Date: 20050705
  Receipt Date: 20050617
  Transmission Date: 20060218
  Serious: Yes (Hospitalization)
  Sender: FDA-Public Use
  Company Number: 2005-BP-10650R0

PATIENT
  Age: 4 Month
  Sex: Male

DRUGS (1)
  1. DEXAMETHASONE [Suspect]
     Indication: LARYNGEAL STENOSIS
     Dosage: 1MG/KG/DAY X 1 WEEK

REACTIONS (10)
  - CARDIAC MURMUR [None]
  - CONDITION AGGRAVATED [None]
  - GRANULOMA [None]
  - LARYNGEAL OEDEMA [None]
  - LARYNGEAL STENOSIS [None]
  - POST PROCEDURAL COMPLICATION [None]
  - RESPIRATORY DISTRESS [None]
  - STRIDOR [None]
  - TACHYCARDIA [None]
  - VENTRICULAR HYPERTROPHY [None]
